FAERS Safety Report 17551256 (Version 1)
Quarter: 2020Q1

REPORT INFORMATION
  Report Type: Spontaneous
  Country: US (occurrence: US)
  Receive Date: 20200317
  Receipt Date: 20200317
  Transmission Date: 20200409
  Serious: Yes (Death)
  Sender: FDA-Public Use
  Company Number: US-PARATEK PHARMACEUTICALS, INC.-2020PTK00033

PATIENT
  Age: 61 Year
  Sex: Female

DRUGS (1)
  1. NUZYRA [Suspect]
     Active Substance: OMADACYCLINE
     Indication: MYCOBACTERIAL INFECTION
     Dosage: 300 MG, 1X/DAY
     Route: 048
     Dates: start: 20200101

REACTIONS (3)
  - Death [Fatal]
  - Off label use [Unknown]
  - Drug dose titration not performed [Unknown]

NARRATIVE: CASE EVENT DATE: 20200101
